FAERS Safety Report 9250663 (Version 3)
Quarter: 2014Q2

REPORT INFORMATION
  Report Type: Spontaneous
  Country: US (occurrence: US)
  Receive Date: 20130424
  Receipt Date: 20140528
  Transmission Date: 20141212
  Serious: No
  Sender: FDA-Public Use
  Company Number: US-ASTRAZENECA-2013SE27533

PATIENT
  Age: 58 Year
  Sex: Female
  Weight: 66.7 kg

DRUGS (23)
  1. NEXIUM [Suspect]
     Indication: GASTRIC DISORDER
     Dosage: TWO TIMES A DAY
     Route: 048
     Dates: end: 2010
  2. NEXIUM [Suspect]
     Indication: GASTRIC DISORDER
     Route: 048
     Dates: start: 2009
  3. NEXIUM [Suspect]
     Indication: GASTRIC DISORDER
     Route: 048
     Dates: start: 20110121
  4. PRILOSEC [Suspect]
     Route: 048
  5. PRILOSEC [Suspect]
     Route: 048
     Dates: start: 2009
  6. ZANTAC [Concomitant]
  7. TAGAMET [Concomitant]
  8. TUMS [Concomitant]
  9. POTASSIUM CHLORIDE [Concomitant]
     Dates: start: 2009
  10. POTASSIUM CHLORIDE [Concomitant]
     Dates: start: 20110111
  11. LEXAPRO [Concomitant]
     Dates: start: 2009
  12. VALTREX [Concomitant]
     Dates: start: 2009
  13. TRAMADOL HYDROCHLORIDE [Concomitant]
     Dates: start: 2009
  14. PREMARIN [Concomitant]
     Dates: start: 2009
  15. PREMARIN [Concomitant]
     Dates: start: 20110103
  16. OXYCODONE [Concomitant]
  17. OXYCODONE [Concomitant]
     Dates: start: 20101221
  18. ALPRAZOLAM [Concomitant]
     Dates: start: 20110126
  19. SPIRIVA [Concomitant]
  20. SPIRIVA [Concomitant]
     Dates: start: 20110110
  21. SINGULAIR [Concomitant]
     Dates: start: 20110223
  22. FUROSEMIDE [Concomitant]
     Dates: start: 20110103
  23. AMBIEN [Concomitant]
     Dates: start: 20030905

REACTIONS (16)
  - Osteoporosis [Unknown]
  - Bone disorder [Unknown]
  - Calcium deficiency [Unknown]
  - Chronic obstructive pulmonary disease [Unknown]
  - Diabetes mellitus [Unknown]
  - Fall [Unknown]
  - Multiple fractures [Unknown]
  - Facial bones fracture [Unknown]
  - Scoliosis [Unknown]
  - Bone loss [Unknown]
  - Vitamin D deficiency [Unknown]
  - Stress [Unknown]
  - Insomnia [Unknown]
  - Eating disorder [Unknown]
  - Osteopenia [Unknown]
  - Depression [Unknown]
